FAERS Safety Report 8200448-3 (Version None)
Quarter: 2012Q1

REPORT INFORMATION
  Report Type: 
  Country: None (occurrence: None)
  Receive Date: 20120309
  Receipt Date: 20120309
  Transmission Date: 20120608
  Serious: No
  Sender: FDA-Public Use
  Company Number: None

PATIENT
  Age: 55 Year
  Sex: Female
  Weight: 81.8 kg

DRUGS (4)
  1. OMEPRAZOLE [Suspect]
     Indication: GASTROOESOPHAGEAL REFLUX DISEASE
     Dosage: 40 MGS B.I.D. P.O.
     Route: 048
     Dates: start: 20110630
  2. OMEPRAZOLE [Suspect]
     Indication: OESOPHAGEAL ULCER HAEMORRHAGE
     Dosage: 40 MGS B.I.D. P.O.
     Route: 048
     Dates: start: 20110630
  3. OMEPRAZOLE [Suspect]
     Indication: GASTROOESOPHAGEAL REFLUX DISEASE
     Dosage: 40 MGS B.I.D. P.O.
     Route: 048
     Dates: start: 20120214
  4. OMEPRAZOLE [Suspect]
     Indication: OESOPHAGEAL ULCER HAEMORRHAGE
     Dosage: 40 MGS B.I.D. P.O.
     Route: 048
     Dates: start: 20120214

REACTIONS (2)
  - SKIN MACERATION [None]
  - DIARRHOEA [None]
